FAERS Safety Report 8908197 (Version 1)
Quarter: 2012Q4

REPORT INFORMATION
  Report Type: 
  Country: US (occurrence: US)
  Receive Date: 20121113
  Receipt Date: 20121113
  Transmission Date: 20130627
  Serious: No
  Sender: FDA-Public Use
  Company Number: US-AMGEN-USASP2012047327

PATIENT
  Age: 79 Year
  Sex: Male
  Weight: 92.06 kg

DRUGS (2)
  1. ARANESP [Suspect]
     Indication: ANAEMIA
     Dosage: 40 mug, q4wk (0.45 mg/kg)
     Route: 058
     Dates: start: 20120713
  2. ARANESP [Suspect]
     Indication: RENAL FAILURE CHRONIC

REACTIONS (1)
  - Haemoglobin decreased [Not Recovered/Not Resolved]
